FAERS Safety Report 6574147-8 (Version None)
Quarter: 2010Q1

REPORT INFORMATION
  Report Type: 
  Country: None (occurrence: None)
  Receive Date: 20100119
  Receipt Date: 20100108
  Transmission Date: 20100710
  Serious: Yes (Death, Hospitalization)
  Sender: FDA-Public Use
  Company Number: 2010021853

PATIENT
  Age: 75 Year
  Sex: Male

DRUGS (13)
  1. PRIVIGEN [Suspect]
     Indication: SECONDARY IMMUNODEFICIENCY
     Dosage: 20 G INTRAVENOUS (NOT OTHERWISE SPECIFIED)
     Route: 042
     Dates: start: 20091216, end: 20091216
  2. BISOPROLOL FUMARATE [Concomitant]
  3. FOSINOPRIL SODIUM [Concomitant]
  4. TOREM (TORASEMIDE) [Concomitant]
  5. GLUCOCORTICOIDS (GLUCOCORTICOIDS) [Concomitant]
  6. NEXIUM [Concomitant]
  7. EBRANTIL (URAPIDIL) [Concomitant]
  8. ALLOPURINOL [Concomitant]
  9. XIPAMID (XIPAMIDE) [Concomitant]
  10. VOLTAREN [Concomitant]
  11. BROMINE (BROMINE) [Concomitant]
  12. XALATAN [Concomitant]
  13. ACETYLCYSTEINE [Concomitant]

REACTIONS (3)
  - CARDIOVASCULAR DISORDER [None]
  - CARDIOVASCULAR INSUFFICIENCY [None]
  - GASTROINTESTINAL INFECTION [None]
